FAERS Safety Report 10626774 (Version 1)
Quarter: 2014Q4

REPORT INFORMATION
  Report Type: Spontaneous
  Country: IE (occurrence: IE)
  Receive Date: 20141204
  Receipt Date: 20141204
  Transmission Date: 20150529
  Serious: Yes (Other)
  Sender: FDA-Public Use
  Company Number: PHFR2014IE008281

PATIENT
  Age: 31 Year
  Sex: Female

DRUGS (5)
  1. IRON OXIDES [Suspect]
     Active Substance: FERRIC OXIDE RED
     Indication: MULTIPLE SCLEROSIS
     Route: 065
  2. GILENYA [Suspect]
     Active Substance: FINGOLIMOD HYDROCHLORIDE
     Indication: MULTIPLE SCLEROSIS
     Route: 065
  3. GELATIN [Suspect]
     Active Substance: GELATIN
     Indication: MULTIPLE SCLEROSIS
     Route: 065
  4. MANNITOL. [Suspect]
     Active Substance: MANNITOL
     Indication: MULTIPLE SCLEROSIS
     Route: 065
  5. TITANIUM DIOXIDE [Suspect]
     Active Substance: TITANIUM DIOXIDE
     Indication: MULTIPLE SCLEROSIS
     Route: 065

REACTIONS (4)
  - White blood cell count decreased [Unknown]
  - Lymphocyte count decreased [Unknown]
  - Rash [Unknown]
  - Neutrophil count decreased [Unknown]

NARRATIVE: CASE EVENT DATE: 20141106
